FAERS Safety Report 22047262 (Version 2)
Quarter: 2023Q1

REPORT INFORMATION
  Report Type: Report from Study
  Country: US (occurrence: US)
  Receive Date: 20230301
  Receipt Date: 20230303
  Transmission Date: 20230418
  Serious: No
  Sender: FDA-Public Use
  Company Number: US-002147023-NVSC2023US044241

PATIENT
  Age: 65 Year
  Sex: Female

DRUGS (6)
  1. HYDROCORTISONE [Suspect]
     Active Substance: HYDROCORTISONE
     Indication: Psoriasis
     Dosage: 2.5 %, 2XDAILY FOR 2 WEEKS ON AND 2 WEEKS OFF. IT SHOULD BE DISCONTINUED AFTER TWO WEEKS AND SHOULD
     Route: 061
     Dates: start: 202204
  2. CLOBETASOL [Suspect]
     Active Substance: CLOBETASOL
     Indication: Psoriasis
     Dosage: 0.05 %, BID
     Route: 061
  3. FLUOCINONIDE [Suspect]
     Active Substance: FLUOCINONIDE
     Indication: Psoriasis
     Dosage: 0.5 % (2 TIMES DAILY FOR 2 WEEKS ON AND 2 WEEKS OFF)
     Route: 061
  4. CALCIPOTRIENE [Suspect]
     Active Substance: CALCIPOTRIENE
     Indication: Psoriasis
     Dosage: 0.005 %, BID (2 TIMES DAILY ON THE STEROID ^OFF^ WEEKS)
     Route: 061
  5. BRIMONIDINE TARTRATE [Suspect]
     Active Substance: BRIMONIDINE TARTRATE
     Indication: Psoriasis
     Dosage: 0.33 %, QD
     Route: 061
  6. METRONIDAZOLE [Suspect]
     Active Substance: METRONIDAZOLE
     Indication: Product used for unknown indication
     Dosage: 0.75 %
     Route: 061

REACTIONS (11)
  - Rash [Unknown]
  - Erythema [Unknown]
  - Telangiectasia [Unknown]
  - Macule [Unknown]
  - Papule [Unknown]
  - Rosacea [Unknown]
  - Psoriasis [Unknown]
  - Skin irritation [Unknown]
  - Pruritus [Unknown]
  - Skin burning sensation [Unknown]
  - Seborrhoeic keratosis [Unknown]

NARRATIVE: CASE EVENT DATE: 20210422
